FAERS Safety Report 9117802 (Version 1)
Quarter: 2013Q1

REPORT INFORMATION
  Report Type: Spontaneous
  Country: US (occurrence: US)
  Receive Date: 20130225
  Receipt Date: 20130225
  Transmission Date: 20140127
  Serious: No
  Sender: FDA-Public Use
  Company Number: US-009507513-1302USA008902

PATIENT
  Sex: Female

DRUGS (1)
  1. FOLLISTIM AQ CARTRIDGE [Suspect]
     Dosage: UNK
     Dates: start: 20130210

REACTIONS (3)
  - Underdose [Unknown]
  - Product packaging quantity issue [Unknown]
  - No adverse event [Unknown]
